FAERS Safety Report 10220669 (Version 2)
Quarter: 2014Q3

REPORT INFORMATION
  Report Type: Spontaneous
  Country: IT (occurrence: IT)
  Receive Date: 20140606
  Receipt Date: 20140807
  Transmission Date: 20150326
  Serious: Yes (Hospitalization)
  Sender: FDA-Public Use
  Company Number: IT-TEVA-484930ISR

PATIENT
  Age: 64 Year
  Sex: Female
  Weight: 50 kg

DRUGS (3)
  1. INTERFERON ALFA-2A PEGYLATED [Interacting]
     Active Substance: PEGINTERFERON ALFA-2A
     Indication: PRODUCT USED FOR UNKNOWN INDICATION
     Dates: start: 20131121, end: 20140127
  2. RIBAVIRIN. [Suspect]
     Active Substance: RIBAVIRIN
     Indication: HEPATIC CIRRHOSIS
     Dates: start: 20131121, end: 20140127
  3. VICTRELIS [Interacting]
     Active Substance: BOCEPREVIR
     Indication: HEPATIC CIRRHOSIS
     Dates: start: 20131121, end: 20140127

REACTIONS (2)
  - Anaemia [Recovering/Resolving]
  - Drug interaction [Unknown]

NARRATIVE: CASE EVENT DATE: 20140127
